FAERS Safety Report 18809416 (Version 1)
Quarter: 2021Q1

REPORT INFORMATION
  Report Type: Spontaneous
  Country: CA (occurrence: CA)
  Receive Date: 20210129
  Receipt Date: 20210129
  Transmission Date: 20210419
  Serious: Yes (Other)
  Sender: FDA-Public Use
  Company Number: CA-PURDUE-USA-2020-0201264

PATIENT
  Sex: Male

DRUGS (7)
  1. OXYCONTIN [Suspect]
     Active Substance: OXYCODONE HYDROCHLORIDE
     Indication: PRODUCT USED FOR UNKNOWN INDICATION
     Dosage: UNK
     Route: 048
  2. OXYNEO [Suspect]
     Active Substance: OXYCODONE
     Indication: PAIN
     Dosage: 60 MG, DAILY
     Route: 048
     Dates: start: 2002
  3. OXYNEO [Suspect]
     Active Substance: OXYCODONE
     Indication: NEURALGIA
     Dosage: 120 MG, DAILY
     Route: 048
     Dates: start: 2002
  4. OXYNEO [Suspect]
     Active Substance: OXYCODONE
     Dosage: 100 MG, DAILY
     Route: 048
  5. T4 [Suspect]
     Active Substance: LEVOTHYROXINE
     Indication: PRODUCT USED FOR UNKNOWN INDICATION
     Dosage: 80 MG, DAILY(PER DAY)
     Route: 065
  6. MORPHINE SULFATE. [Suspect]
     Active Substance: MORPHINE SULFATE
     Indication: PRODUCT USED FOR UNKNOWN INDICATION
     Dosage: 80 MG, DAILY
     Route: 048
  7. MARIJUANA [Suspect]
     Active Substance: CANNABIS SATIVA SUBSP. INDICA TOP
     Indication: PAIN
     Dosage: 1 G, DAILY(PER DAY)
     Route: 065

REACTIONS (5)
  - Drug dependence [Unknown]
  - Pain [Unknown]
  - Learning disability [Unknown]
  - Suicidal ideation [Unknown]
  - Depression [Unknown]
